FAERS Safety Report 24653399 (Version 2)
Quarter: 2025Q1

REPORT INFORMATION
  Report Type: Spontaneous
  Country: US (occurrence: US)
  Receive Date: 20241122
  Receipt Date: 20250103
  Transmission Date: 20250409
  Serious: No
  Sender: ELI LILLY AND COMPANY
  Company Number: US-ELI_LILLY_AND_COMPANY-US202411012760

PATIENT
  Age: 54 Year
  Sex: Female
  Weight: 88.889 kg

DRUGS (36)
  1. ZEPBOUND [Suspect]
     Active Substance: TIRZEPATIDE
     Indication: Weight control
     Dosage: 2.5 MG, WEEKLY (1/W)
     Route: 065
     Dates: start: 202402
  2. ZEPBOUND [Suspect]
     Active Substance: TIRZEPATIDE
     Indication: Weight control
     Dosage: 2.5 MG, WEEKLY (1/W)
     Route: 065
     Dates: start: 202402
  3. ZEPBOUND [Suspect]
     Active Substance: TIRZEPATIDE
     Indication: Weight control
     Dosage: 2.5 MG, WEEKLY (1/W)
     Route: 065
     Dates: start: 202402
  4. ZEPBOUND [Suspect]
     Active Substance: TIRZEPATIDE
     Indication: Weight control
     Dosage: 2.5 MG, WEEKLY (1/W)
     Route: 065
     Dates: start: 202402
  5. ZEPBOUND [Suspect]
     Active Substance: TIRZEPATIDE
     Indication: Blood pressure increased
  6. ZEPBOUND [Suspect]
     Active Substance: TIRZEPATIDE
     Indication: Blood pressure increased
  7. ZEPBOUND [Suspect]
     Active Substance: TIRZEPATIDE
     Indication: Blood pressure increased
  8. ZEPBOUND [Suspect]
     Active Substance: TIRZEPATIDE
     Indication: Blood pressure increased
  9. ZEPBOUND [Suspect]
     Active Substance: TIRZEPATIDE
     Indication: Blood cholesterol abnormal
  10. ZEPBOUND [Suspect]
     Active Substance: TIRZEPATIDE
     Indication: Blood cholesterol abnormal
  11. ZEPBOUND [Suspect]
     Active Substance: TIRZEPATIDE
     Indication: Blood cholesterol abnormal
  12. ZEPBOUND [Suspect]
     Active Substance: TIRZEPATIDE
     Indication: Blood cholesterol abnormal
  13. ZEPBOUND [Suspect]
     Active Substance: TIRZEPATIDE
     Indication: Weight control
     Dosage: 5 MG, WEEKLY (1/W)
     Route: 065
     Dates: start: 202403
  14. ZEPBOUND [Suspect]
     Active Substance: TIRZEPATIDE
     Indication: Weight control
     Dosage: 5 MG, WEEKLY (1/W)
     Route: 065
     Dates: start: 202403
  15. ZEPBOUND [Suspect]
     Active Substance: TIRZEPATIDE
     Indication: Weight control
     Dosage: 5 MG, WEEKLY (1/W)
     Route: 065
     Dates: start: 202403
  16. ZEPBOUND [Suspect]
     Active Substance: TIRZEPATIDE
     Indication: Weight control
     Dosage: 5 MG, WEEKLY (1/W)
     Route: 065
     Dates: start: 202403
  17. ZEPBOUND [Suspect]
     Active Substance: TIRZEPATIDE
     Indication: Blood pressure increased
     Route: 065
  18. ZEPBOUND [Suspect]
     Active Substance: TIRZEPATIDE
     Indication: Blood pressure increased
     Route: 065
  19. ZEPBOUND [Suspect]
     Active Substance: TIRZEPATIDE
     Indication: Blood pressure increased
     Route: 065
  20. ZEPBOUND [Suspect]
     Active Substance: TIRZEPATIDE
     Indication: Blood pressure increased
     Route: 065
  21. ZEPBOUND [Suspect]
     Active Substance: TIRZEPATIDE
     Indication: Blood cholesterol abnormal
     Route: 058
  22. ZEPBOUND [Suspect]
     Active Substance: TIRZEPATIDE
     Indication: Blood cholesterol abnormal
     Route: 058
  23. ZEPBOUND [Suspect]
     Active Substance: TIRZEPATIDE
     Indication: Blood cholesterol abnormal
     Route: 058
  24. ZEPBOUND [Suspect]
     Active Substance: TIRZEPATIDE
     Indication: Blood cholesterol abnormal
     Route: 058
  25. ZEPBOUND [Suspect]
     Active Substance: TIRZEPATIDE
     Indication: Weight control
     Route: 058
  26. ZEPBOUND [Suspect]
     Active Substance: TIRZEPATIDE
     Indication: Weight control
     Route: 058
  27. ZEPBOUND [Suspect]
     Active Substance: TIRZEPATIDE
     Indication: Weight control
     Route: 058
  28. ZEPBOUND [Suspect]
     Active Substance: TIRZEPATIDE
     Indication: Weight control
     Route: 058
  29. ZEPBOUND [Suspect]
     Active Substance: TIRZEPATIDE
     Indication: Blood pressure increased
  30. ZEPBOUND [Suspect]
     Active Substance: TIRZEPATIDE
     Indication: Blood pressure increased
  31. ZEPBOUND [Suspect]
     Active Substance: TIRZEPATIDE
     Indication: Blood pressure increased
  32. ZEPBOUND [Suspect]
     Active Substance: TIRZEPATIDE
     Indication: Blood pressure increased
  33. ZEPBOUND [Suspect]
     Active Substance: TIRZEPATIDE
     Indication: Blood cholesterol abnormal
  34. ZEPBOUND [Suspect]
     Active Substance: TIRZEPATIDE
     Indication: Blood cholesterol abnormal
  35. ZEPBOUND [Suspect]
     Active Substance: TIRZEPATIDE
     Indication: Blood cholesterol abnormal
  36. ZEPBOUND [Suspect]
     Active Substance: TIRZEPATIDE
     Indication: Blood cholesterol abnormal

REACTIONS (3)
  - Incorrect dose administered [Unknown]
  - Nausea [Unknown]
  - Constipation [Not Recovered/Not Resolved]

NARRATIVE: CASE EVENT DATE: 20240401
